FAERS Safety Report 10482237 (Version 9)
Quarter: 2015Q2

REPORT INFORMATION
  Report Type: Report from Study
  Country: JP (occurrence: JP)
  Receive Date: 20140929
  Receipt Date: 20150421
  Transmission Date: 20150821
  Serious: Yes (Death, Hospitalization, Other)
  Sender: FDA-Public Use
  Company Number: JP-BAYER-2014-139501

PATIENT
  Age: 69 Year
  Sex: Female
  Weight: 47 kg

DRUGS (6)
  1. HIRUDOID [Concomitant]
     Active Substance: GLYCOSAMINOGLYCANS
     Indication: DRUG TOXICITY PROPHYLAXIS
     Dosage: UNK
     Route: 061
     Dates: start: 20140819, end: 20140915
  2. NEXAVAR [Suspect]
     Active Substance: SORAFENIB
     Indication: FOLLICULAR THYROID CANCER
     Dosage: 600 MG/DAY
     Route: 048
     Dates: start: 20140909, end: 20140915
  3. THYRADIN S [Concomitant]
     Active Substance: LEVOTHYROXINE SODIUM
     Indication: FOLLICULAR THYROID CANCER
     Dosage: DAILY DOSE 100 ?G
     Route: 048
     Dates: start: 20120124, end: 20140915
  4. NEXAVAR [Suspect]
     Active Substance: SORAFENIB
     Indication: FOLLICULAR THYROID CANCER
     Dosage: 800 MG/DAY
     Route: 048
     Dates: start: 20140826, end: 2014
  5. OXYGEN. [Concomitant]
     Active Substance: OXYGEN
     Dosage: UNK
     Route: 055
     Dates: start: 20140913
  6. CARPERITIDE [Concomitant]
     Active Substance: CARPERITIDE

REACTIONS (8)
  - Renal impairment [Not Recovered/Not Resolved]
  - Hypertension [Recovered/Resolved]
  - Malaise [None]
  - Cardiac failure congestive [Fatal]
  - Stomatitis [Unknown]
  - Diarrhoea [Unknown]
  - Palmar-plantar erythrodysaesthesia syndrome [Unknown]
  - Dehydration [None]

NARRATIVE: CASE EVENT DATE: 20140827
